FAERS Safety Report 13094817 (Version 3)
Quarter: 2017Q1

REPORT INFORMATION
  Report Type: Report from Study
  Country: US (occurrence: US)
  Receive Date: 20170106
  Receipt Date: 20170303
  Transmission Date: 20170428
  Serious: Yes (Death, Hospitalization, Other)
  Sender: FDA-Public Use
  Company Number: US-GILEAD-2017-0252073

PATIENT
  Age: 80 Year
  Sex: Female
  Weight: 52.2 kg

DRUGS (8)
  1. OMEPRAZOLE. [Concomitant]
     Active Substance: OMEPRAZOLE
  2. ATROPINE. [Concomitant]
     Active Substance: ATROPINE
  3. ACETAMINOPHEN. [Concomitant]
     Active Substance: ACETAMINOPHEN
  4. ADCIRCA [Concomitant]
     Active Substance: TADALAFIL
  5. AMBRISENTAN [Suspect]
     Active Substance: AMBRISENTAN
     Indication: PULMONARY ARTERIAL HYPERTENSION
     Dosage: 10 MG, QD
     Route: 048
     Dates: start: 20160329, end: 20161230
  6. ALLOPURINOL. [Concomitant]
     Active Substance: ALLOPURINOL
  7. PREDNISOLONE. [Concomitant]
     Active Substance: PREDNISOLONE
  8. ALBUTEROL                          /00139501/ [Concomitant]
     Active Substance: ALBUTEROL

REACTIONS (4)
  - Gastrointestinal haemorrhage [Recovered/Resolved]
  - Acute respiratory failure [Fatal]
  - Renal failure [Fatal]
  - Cardiac failure congestive [Fatal]

NARRATIVE: CASE EVENT DATE: 20161219
